FAERS Safety Report 12113791 (Version 1)
Quarter: 2016Q1

REPORT INFORMATION
  Report Type: Spontaneous
  Country: HU (occurrence: HU)
  Receive Date: 20160225
  Receipt Date: 20160225
  Transmission Date: 20160526
  Serious: Yes (Other)
  Sender: FDA-Public Use
  Company Number: HU-AMGEN-HUNSP2016022002

PATIENT
  Age: 58 Year
  Sex: Female
  Weight: 75 kg

DRUGS (5)
  1. STIMULOTON [Concomitant]
     Indication: DEPRESSION
     Dosage: 50 MG, 1 IN THE MORNING, STARTED 3 MONTHS AGO
  2. XANAX [Concomitant]
     Active Substance: ALPRAZOLAM
     Indication: DEPRESSION
     Dosage: 0.5 MG, 3X1, STARTED 1.5 YEARS AGO
  3. MEDROL [Concomitant]
     Active Substance: METHYLPREDNISOLONE
     Indication: RHEUMATOID ARTHRITIS
     Dosage: 4 MG, 2X1, STARTED 2 MONTHS AGO
  4. ENBREL [Suspect]
     Active Substance: ETANERCEPT
     Indication: RHEUMATOID ARTHRITIS
     Dosage: 50 MG, WEEKLY 1X1 (TUESDAY), STARTED 8 MONTHS AGO, STOPPED 1 MONTH AGO
     Route: 058
     Dates: start: 2015
  5. MELOXAN [Concomitant]
     Indication: RHEUMATOID ARTHRITIS
     Dosage: 15 MG, 1 AT NOON, STARTED 3 MONTHS AGO

REACTIONS (5)
  - Drug ineffective [Not Recovered/Not Resolved]
  - Red blood cell sedimentation rate increased [Not Recovered/Not Resolved]
  - C-reactive protein increased [Not Recovered/Not Resolved]
  - Rheumatoid arthritis [Not Recovered/Not Resolved]
  - Condition aggravated [Not Recovered/Not Resolved]
